FAERS Safety Report 6635541-X (Version None)
Quarter: 2010Q1

REPORT INFORMATION
  Report Type: 
  Country: None (occurrence: None)
  Receive Date: 20100315
  Receipt Date: 20090901
  Transmission Date: 20100710
  Serious: Yes (Hospitalization, Congenital Anomaly)
  Sender: FDA-Public Use
  Company Number: US-ABBOTT-98P-163-0054355-00

PATIENT
  Age: 1 Day
  Sex: Male

DRUGS (2)
  1. DEPAKOTE [Suspect]
     Indication: DRUG EXPOSURE DURING PREGNANCY
     Route: 064
  2. LAMICTAL CD [Suspect]
     Indication: DRUG EXPOSURE DURING PREGNANCY
     Route: 064

REACTIONS (21)
  - ABDOMINAL DISTENSION [None]
  - ATRIAL SEPTAL DEFECT [None]
  - CLINODACTYLY [None]
  - CONGENITAL OPTIC NERVE ANOMALY [None]
  - CORNEAL OPACITY [None]
  - DERMATITIS DIAPER [None]
  - DRUG EXPOSURE DURING PREGNANCY [None]
  - ENCEPHALOPATHY [None]
  - EYE DISORDER [None]
  - FINGER DEFORMITY [None]
  - GAMMA-GLUTAMYLTRANSFERASE INCREASED [None]
  - HAEMATOCRIT DECREASED [None]
  - HYDROCEPHALUS [None]
  - IMPAIRED HEALING [None]
  - JOINT DISLOCATION [None]
  - NEPHROLITHIASIS [None]
  - PATENT DUCTUS ARTERIOSUS [None]
  - SKIN DISCOLOURATION [None]
  - SPINA BIFIDA [None]
  - SYNDACTYLY [None]
  - TALIPES [None]
